FAERS Safety Report 9168939 (Version 2)
Quarter: 2013Q2

REPORT INFORMATION
  Report Type: Spontaneous
  Country: IT (occurrence: IT)
  Receive Date: 20130318
  Receipt Date: 20130419
  Transmission Date: 20140414
  Serious: Yes (Other)
  Sender: FDA-Public Use
  Company Number: IT-PFIZER INC-2013085524

PATIENT
  Age: 19 Year
  Sex: Female

DRUGS (1)
  1. ZITROMAX [Suspect]
     Indication: INFLUENZA
     Dosage: 500 MG, DAILY
     Route: 048
     Dates: start: 20130306

REACTIONS (4)
  - Laryngospasm [Recovering/Resolving]
  - Pruritus [Recovering/Resolving]
  - Rash erythematous [Recovering/Resolving]
  - Urticaria [Recovering/Resolving]
